FAERS Safety Report 7833425-2 (Version None)
Quarter: 2011Q4

REPORT INFORMATION
  Report Type: 
  Country: None (occurrence: None)
  Receive Date: 20111024
  Receipt Date: 20111013
  Transmission Date: 20120403
  Serious: Yes (Other)
  Sender: FDA-Public Use
  Company Number: US-ELI_LILLY_AND_COMPANY-US201110004040

PATIENT
  Sex: Female

DRUGS (2)
  1. FORTEO [Suspect]
  2. BISPHOSPHONATES [Concomitant]

REACTIONS (1)
  - PUBIS FRACTURE [None]
